FAERS Safety Report 6051884-5 (Version None)
Quarter: 2009Q1

REPORT INFORMATION
  Report Type: 
  Country: None (occurrence: None)
  Receive Date: 20090126
  Receipt Date: 20081013
  Transmission Date: 20090719
  Serious: Yes (Other)
  Sender: FDA-Public Use
  Company Number: US-PFIZER INC-2008073211

PATIENT
  Sex: Female
  Weight: 55.329 kg

DRUGS (7)
  1. LYRICA [Suspect]
     Indication: FIBROMYALGIA
     Route: 048
     Dates: start: 20080617
  2. HYDROCODONE BITARTRATE [Concomitant]
  3. FOLIC ACID [Concomitant]
  4. ALPRAZOLAM [Concomitant]
  5. PROVIGIL [Concomitant]
  6. XANAX [Concomitant]
     Dosage: 0.5 MG, 3X/DAY
  7. NORCO [Concomitant]
     Dosage: 10 MG, 4X/DAY

REACTIONS (4)
  - COLOUR BLINDNESS [None]
  - FEELING ABNORMAL [None]
  - SCOTOMA [None]
  - VISION BLURRED [None]
